FAERS Safety Report 18579214 (Version 2)
Quarter: 2020Q4

REPORT INFORMATION
  Report Type: Spontaneous
  Country: US (occurrence: US)
  Receive Date: 20201204
  Receipt Date: 20201221
  Transmission Date: 20210114
  Serious: Yes (Other)
  Sender: FDA-Public Use
  Company Number: US-PFIZER INC-2019554360

PATIENT
  Age: 69 Year
  Sex: Female
  Weight: 77.1 kg

DRUGS (4)
  1. PREMARIN [Suspect]
     Active Substance: ESTROGENS, CONJUGATED
     Indication: VAGINAL DISORDER
     Dosage: 1 G, 2X/WEEK
     Route: 067
  2. PREMARIN [Suspect]
     Active Substance: ESTROGENS, CONJUGATED
     Indication: PELVIC FLOOR DYSFUNCTION
     Dosage: 1 G, 2X/WEEK (QUANTITY FOR 90 DAYS DISPENSE 3 TUBES. )
     Route: 067
  3. PREMARIN [Suspect]
     Active Substance: ESTROGENS, CONJUGATED
     Indication: URINARY TRACT DISORDER
     Dosage: UNK, (SUPPOSED TO TAKE TWICE A WEEK, BUT WOULD ONLY USE LIKE EVERY FIVE DAYS)
  4. PREMARIN [Suspect]
     Active Substance: ESTROGENS, CONJUGATED
     Indication: VULVOVAGINAL DRYNESS

REACTIONS (5)
  - Body height decreased [Unknown]
  - Product dispensing error [Unknown]
  - Off label use [Unknown]
  - Suicidal ideation [Unknown]
  - Intentional product misuse [Unknown]
